FAERS Safety Report 4446169-4 (Version None)
Quarter: 2004Q3

REPORT INFORMATION
  Report Type: 
  Country: None (occurrence: None)
  Receive Date: 20040908
  Receipt Date: 20040611
  Transmission Date: 20050211
  Serious: Yes (Other)
  Sender: FDA-Public Use
  Company Number: MX-BRISTOL-MYERS SQUIBB COMPANY-12612297

PATIENT
  Age: 54 Year
  Sex: Female

DRUGS (4)
  1. PLACEBO [Suspect]
     Indication: RHEUMATOID ARTHRITIS
     Route: 042
     Dates: start: 20030527, end: 20040426
  2. ESTRADIOL [Suspect]
     Indication: MENOPAUSAL SYMPTOMS
     Dates: start: 20031111
  3. METHOTREXATE [Concomitant]
     Dates: start: 20000101
  4. AZULFIDINE [Concomitant]
     Dates: start: 20031111

REACTIONS (1)
  - BREAST CANCER [None]
